FAERS Safety Report 6010981-0 (Version None)
Quarter: 2008Q4

REPORT INFORMATION
  Report Type: 
  Country: None (occurrence: None)
  Receive Date: 20081218
  Receipt Date: 20081212
  Transmission Date: 20090506
  Serious: Yes (Other)
  Sender: FDA-Public Use
  Company Number: B0550080A

PATIENT
  Age: 26 Year
  Sex: Male

DRUGS (3)
  1. EPIVIR [Suspect]
     Route: 048
     Dates: start: 20020601
  2. ZERIT [Concomitant]
     Route: 048
     Dates: start: 20020601
  3. KALETRA [Concomitant]
     Route: 048
     Dates: start: 20020601

REACTIONS (2)
  - IMMUNE RECONSTITUTION SYNDROME [None]
  - PULMONARY SARCOIDOSIS [None]
